FAERS Safety Report 20056255 (Version 1)
Quarter: 2021Q4

REPORT INFORMATION
  Report Type: Spontaneous
  Country: US (occurrence: US)
  Receive Date: 20211111
  Receipt Date: 20211111
  Transmission Date: 20220303
  Serious: No
  Sender: FDA-Public Use
  Company Number: US-TEVA-2021-US-1974618

PATIENT
  Sex: Female

DRUGS (2)
  1. GLIPIZIDE [Suspect]
     Active Substance: GLIPIZIDE
     Dosage: TWO TABS TWICE DAILY
     Route: 065
     Dates: start: 2006
  2. GLIPIZIDE [Suspect]
     Active Substance: GLIPIZIDE
     Dosage: ONE TAB TWICE A DAY
     Route: 065

REACTIONS (3)
  - Fear [Unknown]
  - Off label use [Unknown]
  - Inappropriate schedule of product administration [Unknown]
